FAERS Safety Report 12467563 (Version 1)
Quarter: 2016Q2

REPORT INFORMATION
  Report Type: Spontaneous
  Country: US (occurrence: None)
  Receive Date: 20160614
  Receipt Date: 20160614
  Transmission Date: 20160815
  Serious: Yes (Life-Threatening, Hospitalization)
  Sender: FDA-Public Use
  Company Number: None

PATIENT
  Age: 72 Year
  Sex: Female
  Weight: 86.18 kg

DRUGS (8)
  1. PRO-BIOTIC [Concomitant]
  2. LISINOPRIL. [Suspect]
     Active Substance: LISINOPRIL
     Indication: HYPERTENSION
     Dosage: 1 TABLET A.M. 1 TABLET P.M. BY MOUTH
     Route: 048
     Dates: end: 20160519
  3. NADALOL [Concomitant]
  4. LEVOTHYROXINE. [Concomitant]
     Active Substance: LEVOTHYROXINE
  5. VITAMIN [Concomitant]
     Active Substance: VITAMINS
  6. FELODIPINE. [Concomitant]
     Active Substance: FELODIPINE
  7. CLONIDINE. [Concomitant]
     Active Substance: CLONIDINE
  8. VITAMIN D [Concomitant]
     Active Substance: CHOLECALCIFEROL

REACTIONS (10)
  - Urticaria [None]
  - Peripheral swelling [None]
  - Erythema [None]
  - Swelling face [None]
  - Lip swelling [None]
  - Eyelid oedema [None]
  - Pruritus [None]
  - Joint swelling [None]
  - Angioedema [None]
  - Burning sensation [None]

NARRATIVE: CASE EVENT DATE: 20160519
